FAERS Safety Report 15934449 (Version 1)
Quarter: 2019Q1

REPORT INFORMATION
  Report Type: Spontaneous
  Country: AT (occurrence: AT)
  Receive Date: 20190207
  Receipt Date: 20190207
  Transmission Date: 20190417
  Serious: Yes (Other)
  Sender: FDA-Public Use
  Company Number: AT-BAUSCH-BL-2019-003541

PATIENT
  Age: 23 Year
  Sex: Female

DRUGS (1)
  1. D-PENICILLAMINE [Suspect]
     Active Substance: PENICILLAMINE
     Indication: HEPATO-LENTICULAR DEGENERATION
     Route: 065
     Dates: start: 1962

REACTIONS (2)
  - Elastosis perforans [Recovering/Resolving]
  - Lung cyst [Unknown]

NARRATIVE: CASE EVENT DATE: 1971
